FAERS Safety Report 11994140 (Version 4)
Quarter: 2016Q1

REPORT INFORMATION
  Report Type: Report from Study
  Country: KR (occurrence: KR)
  Receive Date: 20160203
  Receipt Date: 20160318
  Transmission Date: 20160526
  Serious: Yes (Death, Hospitalization)
  Sender: FDA-Public Use
  Company Number: KR-BAYER-2016-015121

PATIENT
  Age: 43 Year
  Sex: Female

DRUGS (10)
  1. SORAFENIB (RAF KINASE INHIBITOR) [Suspect]
     Active Substance: SORAFENIB
     Indication: HEPATOCELLULAR CARCINOMA
     Dosage: UNK
     Dates: start: 20160130
  2. VIREAD [Concomitant]
     Active Substance: TENOFOVIR DISOPROXIL FUMARATE
     Dosage: 300 MG
  3. MEGACE [Concomitant]
     Active Substance: MEGESTROL ACETATE
     Dosage: 400 MG /10 ML
  4. SORAFENIB (RAF KINASE INHIBITOR) [Suspect]
     Active Substance: SORAFENIB
     Indication: HEPATOCELLULAR CARCINOMA
     Dosage: UNK
     Dates: end: 20160209
  5. URSA [Concomitant]
     Dosage: 200 MG
  6. DUROGESIC [Concomitant]
     Active Substance: FENTANYL
     Dosage: 25 MCG/HR
     Route: 062
  7. SORAFENIB (RAF KINASE INHIBITOR) [Suspect]
     Active Substance: SORAFENIB
     Indication: HEPATOCELLULAR CARCINOMA
     Dosage: UNK
     Dates: start: 20151109
  8. LEGALON [Concomitant]
     Active Substance: MILK THISTLE
     Dosage: 140 MG
  9. DUPHALAC [Concomitant]
     Active Substance: LACTULOSE
     Dosage: 15 ML/KG
  10. JURNISTA [Concomitant]
     Active Substance: HYDROMORPHONE HYDROCHLORIDE
     Dosage: 4 MG

REACTIONS (3)
  - Hepatic encephalopathy [Fatal]
  - Azotaemia [Recovered/Resolved]
  - Azotaemia [Fatal]

NARRATIVE: CASE EVENT DATE: 20160121
